FAERS Safety Report 5599688-1 (Version None)
Quarter: 2008Q1

REPORT INFORMATION
  Report Type: 
  Country: None (occurrence: None)
  Receive Date: 20080123
  Receipt Date: 20080114
  Transmission Date: 20080703
  Serious: Yes (Hospitalization)
  Sender: FDA-Public Use
  Company Number: FR-BRISTOL-MYERS SQUIBB COMPANY-14045280

PATIENT
  Age: 54 Year
  Sex: Female

DRUGS (9)
  1. HOLOXAN [Suspect]
     Route: 042
     Dates: start: 20071111, end: 20071115
  2. VEPESID [Suspect]
     Route: 042
     Dates: start: 20071111, end: 20071115
  3. UROMITEXAN [Concomitant]
     Dates: start: 20071111, end: 20071115
  4. ALPRAZOLAM [Concomitant]
  5. ZOLPIDEM [Concomitant]
  6. MAALOX [Concomitant]
  7. ESOMEPRAZOLE [Concomitant]
  8. DALACIN [Concomitant]
     Indication: ARTHRITIS BACTERIAL
     Dates: start: 20070801
  9. RIFAMPICIN [Concomitant]
     Indication: ARTHRITIS BACTERIAL
     Dates: start: 20070801

REACTIONS (2)
  - ARTHRITIS BACTERIAL [None]
  - NEUTROPENIA [None]
